FAERS Safety Report 25971445 (Version 2)
Quarter: 2025Q4

REPORT INFORMATION
  Report Type: Report from Study
  Country: CA (occurrence: CA)
  Receive Date: 20251028
  Receipt Date: 20251030
  Transmission Date: 20260117
  Serious: Yes (Other)
  Sender: JOHNSON AND JOHNSON
  Company Number: CA-JNJFOC-20251027821

PATIENT
  Age: 6 Decade
  Sex: Female

DRUGS (1)
  1. SIMPONI [Suspect]
     Active Substance: GOLIMUMAB
     Indication: Rheumatoid arthritis
     Route: 041
     Dates: start: 20210222

REACTIONS (5)
  - Pneumonia [Recovering/Resolving]
  - Osteomyelitis [Unknown]
  - Rheumatoid arthritis [Unknown]
  - Off label use [Unknown]
  - Product dose omission issue [Unknown]
